FAERS Safety Report 20949787 (Version 3)
Quarter: 2023Q1

REPORT INFORMATION
  Report Type: Spontaneous
  Country: US (occurrence: US)
  Receive Date: 20220613
  Receipt Date: 20230203
  Transmission Date: 20230418
  Serious: No
  Sender: FDA-Public Use
  Company Number: US-CELLTRION INC.-2022US008908

PATIENT

DRUGS (7)
  1. TRUXIMA [Suspect]
     Active Substance: RITUXIMAB-ABBS
     Indication: Mantle cell lymphoma
     Dosage: 1282 MG, Q3 WEEKS
     Route: 042
     Dates: start: 20220527
  2. TRUXIMA [Suspect]
     Active Substance: RITUXIMAB-ABBS
     Dosage: 600MG IN 5CC IN NS OVER 2 HOURS IV
     Route: 042
     Dates: start: 20220603
  3. TRUXIMA [Suspect]
     Active Substance: RITUXIMAB-ABBS
     Dosage: 600MG IN 5CC IN NS OVER 2 HOURS IV
     Route: 042
     Dates: start: 20220624
  4. FOSAPREPITANT [Concomitant]
     Active Substance: FOSAPREPITANT
  5. DEMEROL [Concomitant]
     Active Substance: MEPERIDINE HYDROCHLORIDE
     Dosage: UNK
  6. SOLU-MEDROL [Concomitant]
     Active Substance: METHYLPREDNISOLONE SODIUM SUCCINATE
     Dosage: UNK
  7. HYDRAMINE [Concomitant]
     Active Substance: DIPHENHYDRAMINE HYDROCHLORIDE

REACTIONS (1)
  - Off label use [Unknown]
